FAERS Safety Report 24758081 (Version 2)
Quarter: 2025Q4

REPORT INFORMATION
  Report Type: Spontaneous
  Country: US (occurrence: None)
  Receive Date: 20241220
  Receipt Date: 20251030
  Transmission Date: 20260119
  Serious: No
  Sender: UCB
  Company Number: US-UCBSA-2024052575

PATIENT
  Weight: 99.7 kg

DRUGS (1)
  1. BIMZELX [Suspect]
     Active Substance: BIMEKIZUMAB-BKZX
     Indication: Psoriatic arthropathy
     Dosage: 320 MILLIGRAM, EV 4 WEEKS

REACTIONS (2)
  - Injection site pain [Unknown]
  - Inappropriate schedule of product administration [Unknown]
